FAERS Safety Report 17785478 (Version 1)
Quarter: 2020Q2

REPORT INFORMATION
  Report Type: Spontaneous
  Country: DE (occurrence: DE)
  Receive Date: 20200514
  Receipt Date: 20200514
  Transmission Date: 20200714
  Serious: Yes (Other)
  Sender: FDA-Public Use
  Company Number: DE-009507513-2005DEU000882

PATIENT
  Age: 34 Year
  Sex: Female
  Weight: 153 kg

DRUGS (13)
  1. DEKRISTOL [Concomitant]
     Active Substance: CHOLECALCIFEROL
     Dosage: 20000 INTERNATIONAL UNIT
  2. TOREM [Concomitant]
     Active Substance: TORSEMIDE
  3. TACROLIMUS. [Suspect]
     Active Substance: TACROLIMUS
     Route: 065
  4. PANTOZOL [Concomitant]
     Active Substance: PANTOPRAZOLE SODIUM
  5. ACYCLOVIR. [Concomitant]
     Active Substance: ACYCLOVIR
  6. ENANTONE LP [Concomitant]
     Active Substance: LEUPROLIDE ACETATE
     Dates: start: 201701, end: 201904
  7. ADVANTAN [Concomitant]
     Active Substance: METHYLPREDNISOLONE ACEPONATE
  8. FOLSAN [Concomitant]
     Active Substance: FOLIC ACID
  9. NOXAFIL [Suspect]
     Active Substance: POSACONAZOLE
     Route: 065
  10. URSOFALK [Concomitant]
     Active Substance: URSODIOL
  11. ALLOPURINOL. [Concomitant]
     Active Substance: ALLOPURINOL
  12. COTRIM FORTE [Concomitant]
     Active Substance: SULFAMETHOXAZOLE\TRIMETHOPRIM
  13. PREDNISOLON [Suspect]
     Active Substance: PREDNISOLONE
     Dosage: 7.5 MILLIGRAM DAILY;
     Route: 065

REACTIONS (2)
  - Deep vein thrombosis [Unknown]
  - Pulmonary embolism [Unknown]

NARRATIVE: CASE EVENT DATE: 20190215
